FAERS Safety Report 19410163 (Version 1)
Quarter: 2021Q2

REPORT INFORMATION
  Report Type: Spontaneous
  Country: AU (occurrence: AU)
  Receive Date: 20210614
  Receipt Date: 20210614
  Transmission Date: 20210717
  Serious: Yes (Hospitalization)
  Sender: FDA-Public Use
  Company Number: AU-LUPIN PHARMACEUTICALS INC.-2021-09208

PATIENT
  Age: 55 Year
  Sex: Male

DRUGS (1)
  1. CLONIDINE. [Suspect]
     Active Substance: CLONIDINE
     Indication: SALIVARY HYPERSECRETION
     Dosage: 50 MICROGRAM
     Route: 065

REACTIONS (2)
  - Impulsive behaviour [Recovered/Resolved]
  - Sexually inappropriate behaviour [Recovered/Resolved]
